FAERS Safety Report 8267132-1 (Version None)
Quarter: 2012Q2

REPORT INFORMATION
  Report Type: 
  Country: None (occurrence: None)
  Receive Date: 20120409
  Receipt Date: 20120402
  Transmission Date: 20120825
  Serious: Yes (Other)
  Sender: FDA-Public Use
  Company Number: JP-PFIZER INC-2012083221

PATIENT
  Age: 95 Year
  Sex: Male

DRUGS (1)
  1. LYRICA [Suspect]
     Dosage: 75 MG/DAY
     Dates: start: 20120303, end: 20120319

REACTIONS (1)
  - ATRIOVENTRICULAR BLOCK COMPLETE [None]
